FAERS Safety Report 8212793-6 (Version None)
Quarter: 2012Q1

REPORT INFORMATION
  Report Type: 
  Country: None (occurrence: None)
  Receive Date: 20120228
  Receipt Date: 20111202
  Transmission Date: 20120608
  Serious: Yes (Hospitalization)
  Sender: FDA-Public Use
  Company Number: RB-35246-2011

PATIENT
  Age: 56 Year
  Sex: Male

DRUGS (3)
  1. SUBOXONE [Suspect]
     Indication: PRODUCT USED FOR UNKNOWN INDICATION
  2. SUBOXONE [Suspect]
     Indication: PRODUCT USED FOR UNKNOWN INDICATION
  3. PAIN [Concomitant]

REACTIONS (7)
  - RHINORRHOEA [None]
  - PAIN [None]
  - MALAISE [None]
  - SNEEZING [None]
  - IRRITABILITY [None]
  - ASTHENIA [None]
  - DIARRHOEA [None]
